FAERS Safety Report 9374515 (Version 1)
Quarter: 2013Q2

REPORT INFORMATION
  Report Type: Spontaneous
  Country: US (occurrence: US)
  Receive Date: 20130628
  Receipt Date: 20130628
  Transmission Date: 20140414
  Serious: Yes (Hospitalization, Other)
  Sender: FDA-Public Use
  Company Number: US-B.I. PHARMACEUTICALS,INC./RIDGEFIELD-2013-BI-18669GD

PATIENT
  Age: 72 Year
  Sex: Male
  Weight: 90 kg

DRUGS (3)
  1. PRADAXA [Suspect]
     Indication: ATRIAL FIBRILLATION
     Dosage: 300 MG
  2. ANTIHYPERTENSIVE MEDICATION [Concomitant]
     Indication: HYPERTENSION
  3. ASPIRIN [Concomitant]
     Dosage: 81 MG

REACTIONS (8)
  - Traumatic intracranial haemorrhage [Recovered/Resolved]
  - Subdural haematoma [Recovered/Resolved]
  - Brain midline shift [Recovered/Resolved]
  - Speech disorder [Recovered/Resolved]
  - Dysarthria [Recovered/Resolved]
  - Paraesthesia [Recovered/Resolved]
  - Asthenia [Unknown]
  - Thrombin time prolonged [Unknown]
